FAERS Safety Report 9665181 (Version 1)
Quarter: 2013Q4

REPORT INFORMATION
  Report Type: Report from Study
  Country: IL (occurrence: IL)
  Receive Date: 20131101
  Receipt Date: 20131101
  Transmission Date: 20140711
  Serious: Yes (Other)
  Sender: FDA-Public Use
  Company Number: PHHY2013IL123891

PATIENT
  Age: 27 Year
  Sex: Female

DRUGS (1)
  1. GILENYA [Suspect]
     Indication: MULTIPLE SCLEROSIS
     Dosage: 0.5 MG, QD
     Route: 048
     Dates: start: 20120219

REACTIONS (6)
  - Epilepsy [Unknown]
  - Speech disorder [Unknown]
  - Lip disorder [Unknown]
  - Asthenia [Unknown]
  - Fatigue [Unknown]
  - Vision blurred [Not Recovered/Not Resolved]
